FAERS Safety Report 17851315 (Version 1)
Quarter: 2020Q2

REPORT INFORMATION
  Report Type: Spontaneous
  Country: FR (occurrence: FR)
  Receive Date: 20200602
  Receipt Date: 20200602
  Transmission Date: 20200714
  Serious: Yes (Hospitalization)
  Sender: FDA-Public Use
  Company Number: NVSC2020FR151399

PATIENT
  Age: 64 Year
  Sex: Male
  Weight: 53.2 kg

DRUGS (6)
  1. LEVOFLOXACIN. [Suspect]
     Active Substance: LEVOFLOXACIN
     Indication: LUNG DISORDER
     Dosage: 1000 MG, QD
     Route: 048
     Dates: start: 20200305, end: 20200309
  2. TAZOBACTAM [Suspect]
     Active Substance: TAZOBACTAM
     Indication: LUNG DISORDER
     Dosage: UNK
     Route: 042
     Dates: start: 20200302, end: 20200309
  3. PIPERACILLIN. [Suspect]
     Active Substance: PIPERACILLIN SODIUM
     Indication: LUNG DISORDER
     Dosage: UNK
     Route: 042
     Dates: start: 20200302, end: 20200309
  4. BACTRIM [Suspect]
     Active Substance: SULFAMETHOXAZOLE\TRIMETHOPRIM
     Indication: PNEUMOCYSTIS JIROVECII PNEUMONIA
     Dosage: 6 DF, QD
     Route: 048
     Dates: start: 20200304, end: 20200310
  5. ACIDE CLAVULANIQUE [Suspect]
     Active Substance: CLAVULANIC ACID
     Indication: LUNG DISORDER
     Dosage: UNK
     Route: 048
     Dates: start: 20200222, end: 20200302
  6. AMOXICILLINE [Suspect]
     Active Substance: AMOXICILLIN
     Indication: LUNG DISORDER
     Dosage: UNK
     Route: 048
     Dates: start: 20200222, end: 20200302

REACTIONS (2)
  - Hepatocellular injury [Recovering/Resolving]
  - Hypertransaminasaemia [Recovering/Resolving]

NARRATIVE: CASE EVENT DATE: 20200310
